FAERS Safety Report 21754267 (Version 1)
Quarter: 2022Q4

REPORT INFORMATION
  Report Type: Spontaneous
  Country: GR (occurrence: GR)
  Receive Date: 20221220
  Receipt Date: 20221220
  Transmission Date: 20230113
  Serious: No
  Sender: FDA-Public Use
  Company Number: GR-PFIZER INC-PV202200120542

PATIENT
  Age: 14 Year
  Sex: Male
  Weight: 53 kg

DRUGS (2)
  1. GENOTROPIN [Suspect]
     Active Substance: SOMATROPIN
     Indication: Hypophysitis
     Dosage: 1.2 MG, 2X/WEEK (1.2MG X 2 TIMES A WEEK, 1.4MG X 4 TIMES A WEEK AND 1 DAY OFF)
     Route: 058
     Dates: start: 202211
  2. GENOTROPIN [Suspect]
     Active Substance: SOMATROPIN
     Dosage: 1.4 MG, 4X/WEEK (1.2MG X 2 TIMES A WEEK, 1.4MG X 4 TIMES A WEEK AND 1 DAY OFF)
     Route: 058
     Dates: start: 202211

REACTIONS (1)
  - Device use error [Unknown]

NARRATIVE: CASE EVENT DATE: 20221206
